FAERS Safety Report 17503771 (Version 1)
Quarter: 2020Q1

REPORT INFORMATION
  Report Type: Spontaneous
  Country: US (occurrence: US)
  Receive Date: 20200305
  Receipt Date: 20200305
  Transmission Date: 20200409
  Serious: No
  Sender: FDA-Public Use
  Company Number: US-ROCHE-2345406

PATIENT
  Sex: Female

DRUGS (14)
  1. FLUTICASONE. [Concomitant]
     Active Substance: FLUTICASONE
  2. FUROSEMIDE. [Concomitant]
     Active Substance: FUROSEMIDE
  3. GLIMEPIRIDE. [Concomitant]
     Active Substance: GLIMEPIRIDE
  4. LIVALO [Concomitant]
     Active Substance: PITAVASTATIN CALCIUM
  5. CETRIZINE [Concomitant]
     Active Substance: CETIRIZINE HYDROCHLORIDE
  6. MONTELUKAST [Concomitant]
     Active Substance: MONTELUKAST SODIUM
  7. PREDNISONE. [Concomitant]
     Active Substance: PREDNISONE
  8. XOLAIR [Suspect]
     Active Substance: OMALIZUMAB
     Indication: ASTHMA
     Route: 058
     Dates: start: 20190601
  9. ALBUTEROL [SALBUTAMOL] [Concomitant]
     Active Substance: ALBUTEROL
  10. OLOPATADINE. [Concomitant]
     Active Substance: OLOPATADINE
  11. ASPIRIN [ACETYLSALICYLIC ACID] [Concomitant]
     Active Substance: ASPIRIN
  12. SYMBICORT [Concomitant]
     Active Substance: BUDESONIDE\FORMOTEROL FUMARATE DIHYDRATE
  13. POTASSIUM [Concomitant]
     Active Substance: POTASSIUM
  14. INDOMETHACIN [INDOMETACIN] [Concomitant]
     Active Substance: INDOMETHACIN

REACTIONS (4)
  - Bursitis [Unknown]
  - Muscle spasms [Unknown]
  - Restless legs syndrome [Unknown]
  - Fall [Unknown]
